FAERS Safety Report 21591633 (Version 2)
Quarter: 2023Q4

REPORT INFORMATION
  Report Type: Report from Study
  Country: US (occurrence: US)
  Receive Date: 20221114
  Receipt Date: 20231218
  Transmission Date: 20240109
  Serious: Yes (Other)
  Sender: FDA-Public Use
  Company Number: US-UCBSA-2022064113

PATIENT
  Sex: Female

DRUGS (6)
  1. LEVETIRACETAM [Suspect]
     Active Substance: LEVETIRACETAM
     Indication: Seizure
     Dosage: 3500 MILLIGRAM DAILY
     Dates: start: 2007
  2. LEVETIRACETAM [Suspect]
     Active Substance: LEVETIRACETAM
     Dosage: 2000 MILLIGRAM DAILY
     Dates: end: 202112
  3. VIMPAT [Suspect]
     Active Substance: LACOSAMIDE
     Indication: Product used for unknown indication
     Dosage: 150 MILLIGRAM, 2X/DAY (BID)
  4. DEPAKOTE [Concomitant]
     Active Substance: DIVALPROEX SODIUM
     Indication: Seizure
     Dosage: 750 MILLIGRAM, 2X/DAY (BID)
  5. DEPAKOTE [Concomitant]
     Active Substance: DIVALPROEX SODIUM
     Dosage: 500 MILLIGRAM, 2X/DAY (BID)
  6. KLONOPIN [Concomitant]
     Active Substance: CLONAZEPAM
     Indication: Epilepsy
     Dosage: 1 MILLIGRAM, 2X/DAY (BID)

REACTIONS (14)
  - Seizure cluster [Not Recovered/Not Resolved]
  - Endotracheal intubation [Not Recovered/Not Resolved]
  - Drug ineffective [Unknown]
  - Seizure [Unknown]
  - Caesarean section [Unknown]
  - Hyperemesis gravidarum [Recovered/Resolved]
  - Meconium in amniotic fluid [Unknown]
  - Amniocentesis abnormal [Unknown]
  - Lactation insufficiency [Recovered/Resolved]
  - Mastitis postpartum [Recovered/Resolved]
  - Placental disorder [Unknown]
  - Maternal exposure during pregnancy [Unknown]
  - Maternal exposure during breast feeding [Unknown]
  - Overdose [Unknown]

NARRATIVE: CASE EVENT DATE: 20070101
